FAERS Safety Report 5420629-1 (Version None)
Quarter: 2007Q3

REPORT INFORMATION
  Report Type: 
  Country: None (occurrence: None)
  Receive Date: 20070821
  Receipt Date: 20070816
  Transmission Date: 20080115
  Serious: Yes (Life-Threatening, Disabling, Other)
  Sender: FDA-Public Use
  Company Number: NL-NOVOPROD-266600

PATIENT
  Age: 38 Year
  Sex: Female

DRUGS (2)
  1. NOVOSEVEN [Suspect]
     Indication: SHOCK HAEMORRHAGIC
     Dosage: 7.2 MG X 2 WITH 120 MIN BETWEEN
     Route: 042
  2. NOVOSEVEN [Suspect]
     Dosage: 9 MG X 1
     Route: 042

REACTIONS (3)
  - EXTREMITY NECROSIS [None]
  - ISCHAEMIA [None]
  - MULTI-ORGAN FAILURE [None]
